APPROVED DRUG PRODUCT: CYCLOSPORINE
Active Ingredient: CYCLOSPORINE
Strength: 0.05%
Dosage Form/Route: EMULSION;OPHTHALMIC
Application: A207606 | Product #001
Applicant: APOTEX INC
Approved: Jan 12, 2023 | RLD: No | RS: No | Type: DISCN